FAERS Safety Report 9437748 (Version 1)
Quarter: 2013Q3

REPORT INFORMATION
  Report Type: Spontaneous
  Country: US (occurrence: US)
  Receive Date: 20130802
  Receipt Date: 20130802
  Transmission Date: 20140515
  Serious: No
  Sender: FDA-Public Use
  Company Number: US-PFIZER INC-2013223284

PATIENT
  Age: 62 Year
  Sex: Female

DRUGS (6)
  1. GEODON [Suspect]
     Indication: BIPOLAR I DISORDER
     Dosage: 100 MG, ONCE DAILY
     Route: 048
  2. GEODON [Suspect]
     Dosage: 50MG IN THE MORNING AND 50MG IN THE EVENING
     Route: 048
     Dates: start: 201307
  3. SERTRALINE HYDROCHLORIDE [Concomitant]
     Indication: BIPOLAR I DISORDER
     Dosage: 200 MG, DAILY
     Route: 048
  4. SIMVASTATIN [Concomitant]
     Indication: BLOOD CHOLESTEROL INCREASED
     Dosage: 50 MG, DAILY
  5. LIPITOR [Concomitant]
     Indication: BLOOD CHOLESTEROL INCREASED
     Dosage: UNK
  6. ADDERALL XR [Concomitant]
     Indication: ATTENTION DEFICIT/HYPERACTIVITY DISORDER
     Dosage: 60 MG, DAILY
     Route: 048

REACTIONS (1)
  - Increased appetite [Unknown]
